FAERS Safety Report 21640804 (Version 1)
Quarter: 2022Q4

REPORT INFORMATION
  Report Type: Spontaneous
  Country: US (occurrence: US)
  Receive Date: 20221125
  Receipt Date: 20221125
  Transmission Date: 20230113
  Serious: No
  Sender: FDA-Public Use
  Company Number: US-BRISTOL-MYERS SQUIBB COMPANY-2022-142983

PATIENT
  Sex: Female

DRUGS (2)
  1. ELIQUIS [Suspect]
     Active Substance: APIXABAN
     Indication: Product used for unknown indication
     Route: 048
  2. ELIQUIS [Suspect]
     Active Substance: APIXABAN
     Dosage: SPLITTING TABLET
     Route: 048

REACTIONS (5)
  - Contusion [Unknown]
  - Eye swelling [Unknown]
  - Swelling face [Unknown]
  - Wound haemorrhage [Unknown]
  - Treatment noncompliance [Unknown]
